FAERS Safety Report 14196125 (Version 1)
Quarter: 2017Q4

REPORT INFORMATION
  Report Type: Spontaneous
  Country: JP (occurrence: JP)
  Receive Date: 20171116
  Receipt Date: 20171116
  Transmission Date: 20180321
  Serious: Yes (Hospitalization, Other)
  Sender: FDA-Public Use
  Company Number: JP-MYLANLABS-2017M1072275

PATIENT
  Age: 4 Month
  Sex: Male

DRUGS (17)
  1. ETOPOSIDE. [Suspect]
     Active Substance: ETOPOSIDE
     Indication: ACUTE LYMPHOCYTIC LEUKAEMIA
     Dosage: 60 MG/KG
     Route: 065
  2. AZACITIDINE. [Concomitant]
     Active Substance: AZACITIDINE
     Dosage: THIRD COURSE: 55 MG/M2/DAY FOR 7 DAYS
     Route: 065
  3. MELPHALAN. [Concomitant]
     Active Substance: MELPHALAN
     Indication: ACUTE LYMPHOCYTIC LEUKAEMIA
     Dosage: 180 MG/M2
     Route: 065
  4. ASPARAGINASE [Suspect]
     Active Substance: ASPARAGINASE
     Indication: ACUTE LYMPHOCYTIC LEUKAEMIA
     Dosage: 5000U/M2/DOSE, EVERY 3 DAYS.
     Route: 065
  5. MYCOPHENOLATE MOFETIL. [Concomitant]
     Active Substance: MYCOPHENOLATE MOFETIL
     Indication: GRAFT VERSUS HOST DISEASE
     Route: 065
  6. AZACITIDINE. [Concomitant]
     Active Substance: AZACITIDINE
     Dosage: SEOND COURSE: 55 MG/M2/DAY FOR 7 DAYS
     Route: 065
  7. CYTARABINE. [Concomitant]
     Active Substance: CYTARABINE
     Dosage: 8MG/M2
     Route: 065
  8. AZACITIDINE. [Concomitant]
     Active Substance: AZACITIDINE
     Dosage: FIFTH COURSE: 75 MG/M2/DAY FOR 7 DAYS
     Route: 065
  9. CYTARABINE. [Concomitant]
     Active Substance: CYTARABINE
     Indication: ACUTE LYMPHOCYTIC LEUKAEMIA
     Dosage: 20MG
     Route: 065
  10. AZACITIDINE. [Concomitant]
     Active Substance: AZACITIDINE
     Indication: ACUTE LYMPHOCYTIC LEUKAEMIA
     Dosage: FIRST COURSE: 55 MG/M2/DAY FOR 5 DAYS
     Route: 065
  11. PREDNISOLONE. [Concomitant]
     Active Substance: PREDNISOLONE
     Indication: GRAFT VERSUS HOST DISEASE
     Dosage: 60 MG/M2 DAILY
     Route: 065
  12. PREDNISOLONE. [Concomitant]
     Active Substance: PREDNISOLONE
     Dosage: 6 MG/M2 ON DAY 1 AND DAY 22.
     Route: 065
  13. AZACITIDINE. [Concomitant]
     Active Substance: AZACITIDINE
     Dosage: FOURTH COURSE: 75 MG/M2/DAY FOR 5 DAYS
     Route: 065
  14. BUSULFAN. [Suspect]
     Active Substance: BUSULFAN
     Indication: ACUTE LYMPHOCYTIC LEUKAEMIA
     Dosage: 600-900 NG/ML
     Route: 065
  15. METHOTREXATE. [Concomitant]
     Active Substance: METHOTREXATE
     Indication: ACUTE LYMPHOCYTIC LEUKAEMIA
     Dosage: 8MG
     Route: 065
  16. CYCLOPHOSPHAMIDE. [Suspect]
     Active Substance: CYCLOPHOSPHAMIDE
     Indication: ACUTE LYMPHOCYTIC LEUKAEMIA
     Dosage: 120 MG/KG
     Route: 065
  17. FLUDARABINE [Concomitant]
     Active Substance: FLUDARABINE PHOSPHATE
     Indication: ACUTE LYMPHOCYTIC LEUKAEMIA
     Dosage: 120 MG/M2
     Route: 065

REACTIONS (1)
  - Pulmonary arterial hypertension [Recovered/Resolved]
